FAERS Safety Report 20356486 (Version 1)
Quarter: 2022Q1

REPORT INFORMATION
  Report Type: Spontaneous
  Country: US (occurrence: None)
  Receive Date: 20220119
  Receipt Date: 20220119
  Transmission Date: 20220423
  Serious: Yes (Hospitalization)
  Sender: FDA-Public Use
  Company Number: None

PATIENT
  Age: 18 Year
  Sex: Male
  Weight: 44 kg

DRUGS (1)
  1. TOBRAMYCIN [Suspect]
     Active Substance: TOBRAMYCIN
     Indication: Pneumonia pseudomonal
     Dosage: FREQUENCY : DAILY;?
     Route: 042
     Dates: start: 20220110, end: 20220116

REACTIONS (5)
  - Cystic fibrosis [None]
  - Condition aggravated [None]
  - Blood creatinine increased [None]
  - Creatinine renal clearance decreased [None]
  - Drug level increased [None]

NARRATIVE: CASE EVENT DATE: 20220117
